FAERS Safety Report 7512656-5 (Version None)
Quarter: 2011Q2

REPORT INFORMATION
  Report Type: 
  Country: None (occurrence: None)
  Receive Date: 20110531
  Receipt Date: 20110517
  Transmission Date: 20111010
  Serious: Yes (Other)
  Sender: FDA-Public Use
  Company Number: CA-JNJFOC-20110508455

PATIENT
  Sex: Female
  Weight: 58 kg

DRUGS (1)
  1. REMICADE [Suspect]
     Indication: PRODUCT USED FOR UNKNOWN INDICATION
     Dosage: EVERY 2 TO 6 WEEKS
     Route: 042
     Dates: start: 20110427

REACTIONS (4)
  - SUICIDAL IDEATION [None]
  - MORBID THOUGHTS [None]
  - FATIGUE [None]
  - DEPRESSION [None]
